FAERS Safety Report 10910000 (Version 1)
Quarter: 2015Q1

REPORT INFORMATION
  Report Type: Spontaneous
  Country: US (occurrence: US)
  Receive Date: 20150312
  Receipt Date: 20150312
  Transmission Date: 20150721
  Serious: No
  Sender: FDA-Public Use
  Company Number: US-SA-2014SA139177

PATIENT
  Age: 57 Year
  Sex: Male

DRUGS (2)
  1. NASACORT ALLERGY 24HR [Suspect]
     Active Substance: TRIAMCINOLONE ACETONIDE
     Indication: MULTIPLE ALLERGIES
     Dosage: TAKEN FROM-A COUPLE WEEKS
     Route: 065
  2. RHINOCORT [Concomitant]
     Active Substance: BUDESONIDE

REACTIONS (2)
  - Nasal discomfort [Unknown]
  - Epistaxis [Unknown]
